FAERS Safety Report 16375874 (Version 2)
Quarter: 2019Q2

REPORT INFORMATION
  Report Type: Other
  Country: PL (occurrence: PL)
  Receive Date: 20190531
  Receipt Date: 20190617
  Transmission Date: 20190711
  Serious: Yes (Death, Hospitalization, Other)
  Sender: FDA-Public Use
  Company Number: PL-ASPEN-GLO2019PL005111

PATIENT
  Age: 30 Year
  Sex: Female

DRUGS (3)
  1. CYCLOPHOSPHAMIDE. [Suspect]
     Active Substance: CYCLOPHOSPHAMIDE
     Indication: PRODUCT USED FOR UNKNOWN INDICATION
     Dosage: UNK
     Route: 065
  2. BUSULFAN. [Suspect]
     Active Substance: BUSULFAN
     Indication: PRODUCT USED FOR UNKNOWN INDICATION
     Route: 065
  3. FLUDARABINE [Suspect]
     Active Substance: FLUDARABINE PHOSPHATE
     Indication: PRODUCT USED FOR UNKNOWN INDICATION
     Route: 065

REACTIONS (5)
  - Device related infection [Recovered/Resolved]
  - Death [Fatal]
  - Enterococcal infection [Recovered/Resolved]
  - Neutropenia [Recovered/Resolved]
  - Mucosal toxicity [Recovered/Resolved]

NARRATIVE: CASE EVENT DATE: 201703
